FAERS Safety Report 10084504 (Version 1)
Quarter: 2014Q2

REPORT INFORMATION
  Report Type: Spontaneous
  Country: US (occurrence: None)
  Receive Date: 20140404
  Receipt Date: 20140404
  Transmission Date: 20141212
  Serious: No
  Sender: FDA-Public Use
  Company Number: 1321833

PATIENT
  Sex: Female

DRUGS (3)
  1. PERJETA (PERTUZUMAB) [Suspect]
     Indication: BREAST CANCER METASTATIC
     Dosage: MAINTENANCE DOSE (420 MG, 1 IN  3 WK), UNKNOWN
  2. HERCEPTIN (TRASTUZUMAB) [Suspect]
     Indication: BREAST CANCER METASTATIC
     Dosage: MAINTENANCE DOSE (420 MG, 1 IN 3)
  3. DOCETAXEL [Suspect]
     Indication: BREAST CANCER METASTATIC

REACTIONS (2)
  - Diarrhoea [None]
  - Rhinorrhoea [None]
